FAERS Safety Report 6206499-2 (Version None)
Quarter: 2009Q2

REPORT INFORMATION
  Report Type: 
  Country: None (occurrence: None)
  Receive Date: 20090528
  Receipt Date: 20090511
  Transmission Date: 20091009
  Serious: Yes (Other)
  Sender: FDA-Public Use
  Company Number: BE-BAYER-200920786GPV

PATIENT
  Age: 62 Year
  Sex: Female

DRUGS (1)
  1. AVELOX [Suspect]
     Indication: DRUG USE FOR UNKNOWN INDICATION
     Dosage: UNIT DOSE: 400 MG
     Route: 048
     Dates: end: 20090511

REACTIONS (5)
  - ASTHENIA [None]
  - CHILLS [None]
  - HYPERTENSION [None]
  - NAUSEA [None]
  - VERTIGO [None]
